FAERS Safety Report 21196213 (Version 4)
Quarter: 2022Q3

REPORT INFORMATION
  Report Type: Report from Study
  Country: CN (occurrence: None)
  Receive Date: 20220810
  Receipt Date: 20220821
  Transmission Date: 20221026
  Serious: Yes (Hospitalization)
  Sender: FDA-Public Use
  Company Number: CN-ROCHE-3150488

PATIENT
  Age: 54 Year
  Sex: Male
  Weight: 64 kg

DRUGS (10)
  1. PLACEBO [Suspect]
     Active Substance: UNSPECIFIED INGREDIENT
     Indication: Small cell lung cancer extensive stage
     Dosage: DATE OF MOST RECENT DOSE OF BEVACIZUMAB/PLACEBO PRIOR TO AE AND SAE ONSET: 14/JUL/2022
     Route: 042
     Dates: start: 20220714
  2. ATEZOLIZUMAB [Suspect]
     Active Substance: ATEZOLIZUMAB
     Indication: Small cell lung cancer extensive stage
     Dosage: DOSE OF LAST ATEZOLIZUMAB ADMINISTERED PRIOR TO AE AND SAE ONSET: 1200 MG?DATE OF MOST RECENT DOSE O
     Route: 041
     Dates: start: 20220714
  3. CARBOPLATIN [Suspect]
     Active Substance: CARBOPLATIN
     Indication: Small cell lung cancer extensive stage
     Dosage: DOSE OF LAST CARBOPLATIN ADMINISTERED PRIOR TO AE AND SAE ONSET: 555MG?DATE OF MOST RECENT DOSE OF C
     Route: 042
     Dates: start: 20220714
  4. ETOPOSIDE [Suspect]
     Active Substance: ETOPOSIDE
     Indication: Small cell lung cancer extensive stage
     Dosage: DOSE OF LAST ETOPOSIDE ADMINISTERED PRIOR TO AE AND SAE ONSET: 166MG?DATE OF MOST RECENT DOSE OF ETO
     Route: 042
     Dates: start: 20220714
  5. DOLASETRON MESYLATE [Concomitant]
     Active Substance: DOLASETRON MESYLATE
     Indication: Prophylaxis
     Route: 042
     Dates: start: 20220714, end: 20220719
  6. ENOXAPARIN SODIUM [Concomitant]
     Active Substance: ENOXAPARIN SODIUM
     Dosage: WASH PIPE
     Route: 042
     Dates: start: 20220714, end: 20220719
  7. CARBOHYDRATES\ELECTROLYTES NOS [Concomitant]
     Active Substance: CARBOHYDRATES\ELECTROLYTES NOS
     Route: 042
     Dates: start: 20220714, end: 20220719
  8. PHOSPHOLIPID [Concomitant]
     Active Substance: PHOSPHOLIPID
     Route: 048
     Dates: start: 20220623, end: 20220625
  9. FELODIPINE [Concomitant]
     Active Substance: FELODIPINE
     Route: 048
     Dates: start: 2019
  10. METOCLOPRAMIDE DIHYDROCHLORIDE [Concomitant]
     Route: 042
     Dates: start: 20220714, end: 20220716

REACTIONS (3)
  - Neutrophil count decreased [Recovered/Resolved]
  - White blood cell count decreased [Recovered/Resolved]
  - Platelet count decreased [Not Recovered/Not Resolved]

NARRATIVE: CASE EVENT DATE: 20220727
